FAERS Safety Report 5324010-5 (Version None)
Quarter: 2007Q2

REPORT INFORMATION
  Report Type: 
  Country: None (occurrence: None)
  Receive Date: 20070507
  Receipt Date: 20070426
  Transmission Date: 20071010
  Serious: Yes (Hospitalization)
  Sender: FDA-Public Use
  Company Number: E2090-00233-SPO-DE

PATIENT
  Age: 37 Year
  Sex: Male
  Weight: 70 kg

DRUGS (6)
  1. ZONIGRAM (ZONISAMIDE) [Suspect]
     Indication: EPILEPSY
     Dosage: SEE IMAGE
     Route: 048
     Dates: start: 20061001, end: 20070201
  2. ZONIGRAM (ZONISAMIDE) [Suspect]
     Indication: EPILEPSY
     Dosage: SEE IMAGE
     Route: 048
     Dates: start: 20070201, end: 20070401
  3. ZONIGRAM (ZONISAMIDE) [Suspect]
     Indication: EPILEPSY
     Dosage: SEE IMAGE
     Route: 048
     Dates: start: 20070401
  4. TRILEPTAL [Concomitant]
  5. FLUANXOL (FLUPENTIXOL DIHYDROCHLORIDE) [Concomitant]
  6. DELRIX (RAMIPRIL) [Concomitant]

REACTIONS (1)
  - AGGRESSION [None]
